FAERS Safety Report 5961979-X (Version None)
Quarter: 2008Q4

REPORT INFORMATION
  Report Type: 
  Country: None (occurrence: None)
  Receive Date: 20081121
  Receipt Date: 20081110
  Transmission Date: 20090506
  Serious: Yes (Other)
  Sender: FDA-Public Use
  Company Number: PHHY2008JP26595

PATIENT

DRUGS (3)
  1. AREDIA [Suspect]
     Indication: OSTEOGENESIS IMPERFECTA
     Dosage: 0.125MG/KG
     Route: 042
  2. AREDIA [Suspect]
     Dosage: 0.25MG/KG
  3. AREDIA [Suspect]
     Dosage: 0.5MG/KG

REACTIONS (3)
  - HYPOCALCAEMIA [None]
  - RADIUS FRACTURE [None]
  - TIBIA FRACTURE [None]
